FAERS Safety Report 4867964-3 (Version None)
Quarter: 2005Q4

REPORT INFORMATION
  Report Type: 
  Country: None (occurrence: None)
  Receive Date: 20051227
  Receipt Date: 20051207
  Transmission Date: 20060501
  Serious: Yes (Other)
  Sender: FDA-Public Use
  Company Number: GB-JNJFOC-20051201994

PATIENT
  Sex: Female

DRUGS (2)
  1. TOPAMAX [Suspect]
     Dosage: SEE IMAGE
     Route: 048
  2. LAMICTAL [Concomitant]

REACTIONS (4)
  - EYE DISCHARGE [None]
  - EYE IRRITATION [None]
  - LACRIMATION INCREASED [None]
  - LENS DISLOCATION [None]
